FAERS Safety Report 20718374 (Version 2)
Quarter: 2022Q2

REPORT INFORMATION
  Report Type: Spontaneous
  Country: BE (occurrence: BE)
  Receive Date: 20220418
  Receipt Date: 20220421
  Transmission Date: 20220721
  Serious: Yes (Other)
  Sender: FDA-Public Use
  Company Number: BE-GILEAD-2022-0575983

PATIENT
  Age: 33 Year
  Sex: Female
  Weight: 40 kg

DRUGS (28)
  1. VIREAD [Suspect]
     Active Substance: TENOFOVIR DISOPROXIL FUMARATE
     Indication: HIV infection
     Dosage: 245 MG, QD
     Route: 065
     Dates: start: 20170524, end: 20181217
  2. AMLODIPINE BESYLATE [Concomitant]
     Active Substance: AMLODIPINE BESYLATE
  3. BISOPROLOL FUMARATE [Concomitant]
     Active Substance: BISOPROLOL FUMARATE
  4. BUMETANIDE [Concomitant]
     Active Substance: BUMETANIDE
  5. PERINDOPRIL [Concomitant]
     Active Substance: PERINDOPRIL
  6. MARAVIROC [Concomitant]
     Active Substance: MARAVIROC
  7. EPIVIR [Concomitant]
     Active Substance: LAMIVUDINE
  8. NORVIR [Concomitant]
     Active Substance: RITONAVIR
  9. PREZISTA [Concomitant]
     Active Substance: DARUNAVIR ETHANOLATE
  10. COBICISTAT\DARUNAVIR ETHANOLATE [Concomitant]
     Active Substance: COBICISTAT\DARUNAVIR ETHANOLATE
  11. TIVICAY [Concomitant]
     Active Substance: DOLUTEGRAVIR SODIUM
  12. SULFAMETHOXAZOLE\TRIMETHOPRIM [Concomitant]
     Active Substance: SULFAMETHOXAZOLE\TRIMETHOPRIM
  13. THYROXINE [Concomitant]
     Active Substance: LEVOTHYROXINE
  14. PANTOMED D [Concomitant]
  15. FOLIC ACID [Concomitant]
     Active Substance: FOLIC ACID
  16. MAGNESIUM [Concomitant]
     Active Substance: MAGNESIUM
  17. REMERGON [Concomitant]
     Active Substance: MIRTAZAPINE
  18. LYMECYCLINE [Concomitant]
     Active Substance: LYMECYCLINE
  19. VELPHORO [Concomitant]
     Active Substance: SUCROFERRIC OXYHYDROXIDE
  20. LEVOCETIRIZINE DIHYDROCHLORIDE [Concomitant]
     Active Substance: LEVOCETIRIZINE DIHYDROCHLORIDE
  21. MEDROL A [Concomitant]
  22. FOSCAVIR [Concomitant]
     Active Substance: FOSCARNET SODIUM
  23. FUZEON [Concomitant]
     Active Substance: ENFUVIRTIDE
  24. CHOLECALCIFEROL [Concomitant]
     Active Substance: CHOLECALCIFEROL
  25. DOMINAL (PROTHIPENDYL HYDROCHLORIDE) [Concomitant]
     Active Substance: PROTHIPENDYL HYDROCHLORIDE
  26. VITAMIN D COMPACT [Concomitant]
  27. CALCIUM [Concomitant]
     Active Substance: CALCIUM
  28. BACTRIM [Concomitant]
     Active Substance: SULFAMETHOXAZOLE\TRIMETHOPRIM

REACTIONS (18)
  - Osteoporosis [Unknown]
  - Pathological fracture [Unknown]
  - Drug ineffective [Unknown]
  - Drug resistance [Unknown]
  - Bronchitis [Unknown]
  - Anaemia macrocytic [Unknown]
  - Bone metabolism disorder [Unknown]
  - Productive cough [Unknown]
  - Rhonchi [Unknown]
  - Rales [Unknown]
  - Arthralgia [Unknown]
  - Blood alkaline phosphatase increased [Unknown]
  - Stress [Unknown]
  - Anxiety [Unknown]
  - Wisdom teeth removal [Unknown]
  - Weight increased [Unknown]
  - Hyperparathyroidism [Unknown]
  - Bone disorder [Unknown]

NARRATIVE: CASE EVENT DATE: 20210305
